FAERS Safety Report 15821156 (Version 1)
Quarter: 2018Q4

REPORT INFORMATION
  Report Type: Spontaneous
  Country: US (occurrence: US)
  Receive Date: 20181217
  Receipt Date: 20181217
  Transmission Date: 20190205
  Serious: Yes (Death, Hospitalization)
  Sender: FDA-Public Use
  Company Number: None

PATIENT
  Age: 21 Year
  Sex: Female
  Weight: 80 kg

DRUGS (5)
  1. VINCRISTINE SULFATE. [Suspect]
     Active Substance: VINCRISTINE SULFATE
     Dates: end: 20150909
  2. ONCASPAR [Suspect]
     Active Substance: PEGASPARGASE
     Dates: end: 20150828
  3. METHOTREXATE. [Suspect]
     Active Substance: METHOTREXATE
     Dates: end: 20150901
  4. PREDNISONE. [Suspect]
     Active Substance: PREDNISONE
     Dates: end: 20150909
  5. CYTARABINE. [Suspect]
     Active Substance: CYTARABINE
     Dates: end: 20150824

REACTIONS (15)
  - Acute kidney injury [None]
  - Fluid overload [None]
  - Haemorrhage [None]
  - Oedema [None]
  - Transfusion [None]
  - Gastric haemorrhage [None]
  - Tumour lysis syndrome [None]
  - Oxygen saturation decreased [None]
  - Agitation [None]
  - Venoocclusive liver disease [None]
  - Pulmonary haemorrhage [None]
  - Hepatitis acute [None]
  - Haemodialysis [None]
  - Multiple organ dysfunction syndrome [None]
  - Platelet transfusion [None]

NARRATIVE: CASE EVENT DATE: 20151005
